FAERS Safety Report 14038514 (Version 2)
Quarter: 2018Q1

REPORT INFORMATION
  Report Type: Spontaneous
  Country: FR (occurrence: FR)
  Receive Date: 20171004
  Receipt Date: 20180125
  Transmission Date: 20180508
  Serious: Yes (Hospitalization)
  Sender: FDA-Public Use
  Company Number: FR-JNJFOC-20170928875

PATIENT
  Age: 22 Year
  Sex: Female

DRUGS (2)
  1. DAIVOBET [Concomitant]
     Active Substance: BETAMETHASONE DIPROPIONATE\CALCIPOTRIENE
     Route: 048
     Dates: start: 201711
  2. STELARA [Suspect]
     Active Substance: USTEKINUMAB
     Indication: PSORIASIS
     Route: 058
     Dates: start: 201511, end: 201708

REACTIONS (2)
  - Human papilloma virus test positive [Recovering/Resolving]
  - Anogenital warts [Recovered/Resolved]

NARRATIVE: CASE EVENT DATE: 20170323
